FAERS Safety Report 7978204-0 (Version None)
Quarter: 2011Q4

REPORT INFORMATION
  Report Type: 
  Country: None (occurrence: None)
  Receive Date: 20111129
  Receipt Date: 20110715
  Transmission Date: 20120403
  Serious: No
  Sender: FDA-Public Use
  Company Number: PHHY2011US64638

PATIENT
  Age: 19 Year
  Sex: Female

DRUGS (4)
  1. MULTIVITAMINS (ASCORBIC ACID, ERGOCALCIFEROL, FOLIC ACID, NICOTINAMIDE [Concomitant]
  2. AFINITOR [Suspect]
     Indication: TUBEROUS SCLEROSIS
     Dosage: 10 MG, DAILY, ORAL
     Route: 048
     Dates: start: 20110118
  3. AFINITOR [Suspect]
     Indication: ASTROCYTOMA
     Dosage: 10 MG, DAILY, ORAL
     Route: 048
     Dates: start: 20110118
  4. TEGRETOL [Concomitant]

REACTIONS (1)
  - MENSTRUATION IRREGULAR [None]
